FAERS Safety Report 8743423 (Version 3)
Quarter: 2013Q2

REPORT INFORMATION
  Report Type: Report from Study
  Country: JP (occurrence: JP)
  Receive Date: 20120824
  Receipt Date: 20130514
  Transmission Date: 20140414
  Serious: Yes (Death)
  Sender: FDA-Public Use
  Company Number: JP-VERTEX PHARMACEUTICAL INC.-2012-020114

PATIENT
  Age: 67 Year
  Sex: Female

DRUGS (9)
  1. VX-950 (TELAPREVIR) [Suspect]
     Indication: CHRONIC HEPATITIS C
     Dosage: 1500 MG, QD
     Route: 048
     Dates: start: 20120525, end: 20120816
  2. REBETOL [Suspect]
     Indication: CHRONIC HEPATITIS C
     Dosage: 400 MG, QD
     Route: 048
     Dates: start: 20120525, end: 20120816
  3. PEGINTRON [Suspect]
     Indication: CHRONIC HEPATITIS C
     Dosage: 1.5 ?G/KG, WEEKLY
     Route: 058
     Dates: start: 20120525, end: 20120816
  4. TALION [Concomitant]
     Dosage: 20 MG, QD
     Route: 048
     Dates: start: 20120525, end: 20120816
  5. LOXONIN [Concomitant]
     Dosage: 60 MG, PRN
     Route: 048
     Dates: start: 20120525, end: 20120816
  6. SELBEX [Concomitant]
     Dosage: 50 MG, PRN
     Route: 048
     Dates: start: 20120525, end: 20120816
  7. NEXIUM [Concomitant]
     Dosage: 20 MG, QD
     Route: 048
     Dates: start: 20120525, end: 20120816
  8. ANTEBATE [Concomitant]
     Dosage: 5 G, PRN
     Route: 061
     Dates: start: 20120525, end: 20120601
  9. THYRADIN S [Concomitant]
     Dosage: 50 MCG, QD
     Route: 048
     Dates: end: 20120816

REACTIONS (1)
  - Heat illness [Fatal]
